FAERS Safety Report 14467766 (Version 1)
Quarter: 2018Q1

REPORT INFORMATION
  Report Type: Spontaneous
  Country: TR (occurrence: TR)
  Receive Date: 20180131
  Receipt Date: 20180131
  Transmission Date: 20180509
  Serious: Yes (Other)
  Sender: FDA-Public Use
  Company Number: TR-GLAXOSMITHKLINE-TR2018GSK013206

PATIENT
  Age: 35 Year
  Sex: Male

DRUGS (6)
  1. RISPERIDONE. [Suspect]
     Active Substance: RISPERIDONE
     Dosage: 4 MG, QD
  2. RISPERIDONE. [Suspect]
     Active Substance: RISPERIDONE
     Dosage: 6 MG, QD
  3. DOXYCYCLINE. [Concomitant]
     Active Substance: DOXYCYCLINE
     Indication: ANTIBIOTIC THERAPY
  4. RISPERIDONE. [Suspect]
     Active Substance: RISPERIDONE
     Indication: PRODUCT USED FOR UNKNOWN INDICATION
     Dosage: 2 MG, QD
  5. ACYCLOVIR. [Suspect]
     Active Substance: ACYCLOVIR
     Indication: HERPES SIMPLEX ENCEPHALITIS
  6. VALPROIC ACID. [Concomitant]
     Active Substance: VALPROIC ACID
     Indication: ANTIBIOTIC THERAPY
     Dosage: 1000 MG, QD

REACTIONS (6)
  - Acute kidney injury [Recovered/Resolved]
  - Psychotic symptom [Recovered/Resolved]
  - Focal dyscognitive seizures [Recovered/Resolved]
  - Condition aggravated [Recovered/Resolved]
  - Consciousness fluctuating [Recovered/Resolved]
  - Aggression [Recovered/Resolved]
